FAERS Safety Report 13727399 (Version 1)
Quarter: 2017Q3

REPORT INFORMATION
  Report Type: Report from Study
  Country: CA (occurrence: CA)
  Receive Date: 20170707
  Receipt Date: 20170707
  Transmission Date: 20171127
  Serious: Yes (Other)
  Sender: FDA-Public Use
  Company Number: CA-GLAXOSMITHKLINE-CA2017GSK103881

PATIENT
  Sex: Male

DRUGS (1)
  1. MEPOLIZUMAB [Suspect]
     Active Substance: MEPOLIZUMAB
     Indication: ASTHMA
     Dosage: 100 MG, CYC (MONTHLY)
     Route: 042

REACTIONS (6)
  - Breath odour [Unknown]
  - Sluggishness [Unknown]
  - Poisoning [Unknown]
  - Ocular hyperaemia [Unknown]
  - Slow speech [Unknown]
  - Gait disturbance [Unknown]
